FAERS Safety Report 19084454 (Version 1)
Quarter: 2021Q2

REPORT INFORMATION
  Report Type: Spontaneous
  Country: US (occurrence: US)
  Receive Date: 20210401
  Receipt Date: 20210401
  Transmission Date: 20210717
  Serious: Yes (Hospitalization)
  Sender: FDA-Public Use
  Company Number: US-PROCTER_AND_GAMBLE-PH21002764

PATIENT
  Age: 17 Year
  Sex: Female

DRUGS (5)
  1. IBUPROFEN. [Suspect]
     Active Substance: IBUPROFEN
     Indication: GASTROINTESTINAL DISORDER PROPHYLAXIS
     Dosage: 600 MILLIGRAM
     Route: 048
  2. IBUPROFEN. [Suspect]
     Active Substance: IBUPROFEN
     Indication: PROPHYLAXIS OF NAUSEA AND VOMITING
  3. BISMUTH SUBSALICYLATE, UNSPECIFIED [Suspect]
     Active Substance: BISMUTH SUBSALICYLATE
     Indication: PROPHYLAXIS OF NAUSEA AND VOMITING
  4. SODIUM NITRITE [Suspect]
     Active Substance: SODIUM NITRITE
     Indication: SUICIDE ATTEMPT
     Dosage: 21 GRAM
     Route: 048
  5. BISMUTH SUBSALICYLATE, UNSPECIFIED [Suspect]
     Active Substance: BISMUTH SUBSALICYLATE
     Indication: GASTROINTESTINAL DISORDER PROPHYLAXIS
     Dosage: HALF OF A BOTTLE
     Route: 048

REACTIONS (5)
  - Product use in unapproved indication [Unknown]
  - Methaemoglobinaemia [Recovered/Resolved]
  - Cyanosis [Recovered/Resolved]
  - Pallor [Recovered/Resolved]
  - Blood methaemoglobin present [Recovered/Resolved]
